FAERS Safety Report 21119672 (Version 5)
Quarter: 2022Q3

REPORT INFORMATION
  Report Type: Report from Study
  Country: None (occurrence: ES)
  Receive Date: 20220722
  Receipt Date: 20220902
  Transmission Date: 20221026
  Serious: Yes (Other)
  Sender: FDA-Public Use
  Company Number: ES-AKCEA THERAPEUTICS, INC.-2022IS003650

PATIENT
  Age: 59 Year
  Sex: Female

DRUGS (14)
  1. TEGSEDI [Suspect]
     Active Substance: INOTERSEN SODIUM
     Indication: Hereditary neuropathic amyloidosis
     Route: 058
     Dates: start: 20220228
  2. DEVICE [Suspect]
     Active Substance: DEVICE
  3. TACROLIMUS [Concomitant]
     Active Substance: TACROLIMUS
     Route: 048
  4. CELLCEPT [Concomitant]
     Active Substance: MYCOPHENOLATE MOFETIL
     Route: 048
  5. BRIMVERA [Concomitant]
     Route: 065
  6. DORZOLAMIDE HYDROCHLORIDE\TIMOLOL MALEATE [Concomitant]
     Active Substance: DORZOLAMIDE HYDROCHLORIDE\TIMOLOL MALEATE
     Route: 065
  7. SYSTANE (HYPROMELLOSE 2910 (4000 MPA.S)) [Concomitant]
     Active Substance: HYPROMELLOSE 2910 (4000 MPA.S)
     Route: 048
  8. OLMESARTAN MEDOXOMIL [Concomitant]
     Active Substance: OLMESARTAN MEDOXOMIL
     Route: 048
  9. ASPIRIN [Concomitant]
     Active Substance: ASPIRIN
     Route: 048
  10. LORAZEPAM [Concomitant]
     Active Substance: LORAZEPAM
     Route: 048
  11. PANTOPRAZOLE [Concomitant]
     Active Substance: PANTOPRAZOLE
     Route: 048
  12. CYANOCOBALAMIN\FOLIC ACID [Concomitant]
     Active Substance: CYANOCOBALAMIN\FOLIC ACID
     Route: 048
  13. FLUOXETINE HYDROCHLORIDE [Concomitant]
     Active Substance: FLUOXETINE HYDROCHLORIDE
     Route: 048
  14. COSDUO [Concomitant]
     Route: 065

REACTIONS (31)
  - Hallucination [Not Recovered/Not Resolved]
  - Blindness [Not Recovered/Not Resolved]
  - Charles Bonnet syndrome [Recovered/Resolved]
  - Mean cell haemoglobin concentration decreased [Not Recovered/Not Resolved]
  - Mean platelet volume increased [Not Recovered/Not Resolved]
  - Brain natriuretic peptide increased [Recovered/Resolved]
  - Urine leukocyte esterase positive [Recovered/Resolved]
  - White blood cells urine positive [Not Recovered/Not Resolved]
  - Urinary sediment present [Recovered/Resolved]
  - Bacteriuria [Not Recovered/Not Resolved]
  - Gait disturbance [Not Recovered/Not Resolved]
  - Blood bilirubin increased [Recovered/Resolved]
  - Dysuria [Not Recovered/Not Resolved]
  - Crystal urine present [Unknown]
  - Platelet count decreased [Unknown]
  - Blood magnesium decreased [Unknown]
  - Blood creatinine increased [Unknown]
  - Injection site haematoma [Not Recovered/Not Resolved]
  - Coma [Unknown]
  - Seizure [Unknown]
  - Cerebrovascular accident [Unknown]
  - Dysarthria [Unknown]
  - Asthenia [Unknown]
  - Mental disorder [Unknown]
  - Paraesthesia oral [Unknown]
  - Diarrhoea [Recovered/Resolved]
  - Depressed mood [Unknown]
  - Creatinine urine increased [Unknown]
  - Haemoglobin urine present [Unknown]
  - Myoglobin urine present [Unknown]
  - Protein urine present [Unknown]

NARRATIVE: CASE EVENT DATE: 20220307
